FAERS Safety Report 9036283 (Version 1)
Quarter: 2013Q1

REPORT INFORMATION
  Report Type: Spontaneous
  Country: US (occurrence: None)
  Receive Date: 20130123
  Receipt Date: 20130123
  Transmission Date: 20140127
  Serious: Yes (Disabling, Other)
  Sender: FDA-Public Use
  Company Number: None

PATIENT
  Age: 45 Year
  Sex: Female
  Weight: 72.12 kg

DRUGS (1)
  1. LEVAQUIN [Suspect]
     Indication: PNEUMONIA
     Dates: start: 20130109, end: 20130113

REACTIONS (7)
  - Tendonitis [None]
  - Myalgia [None]
  - Exostosis [None]
  - Gait disturbance [None]
  - Asthenia [None]
  - Fatigue [None]
  - Sleep disorder [None]
